FAERS Safety Report 5534520-3 (Version None)
Quarter: 2007Q4

REPORT INFORMATION
  Report Type: 
  Country: None (occurrence: None)
  Receive Date: 20071204
  Receipt Date: 20071204
  Transmission Date: 20080405
  Serious: No
  Sender: FDA-Public Use
  Company Number: None

PATIENT
  Sex: Male
  Weight: 83.9154 kg

DRUGS (1)
  1. CHANTIX [Suspect]
     Indication: SMOKING CESSATION THERAPY
     Dosage: 1 MG TWICE A DAY PO
     Route: 048
     Dates: start: 20070911, end: 20071202

REACTIONS (6)
  - ABNORMAL DREAMS [None]
  - AGGRESSION [None]
  - DEPRESSION [None]
  - INSOMNIA [None]
  - NAUSEA [None]
  - SUICIDAL IDEATION [None]
